FAERS Safety Report 22141933 (Version 1)
Quarter: 2023Q1

REPORT INFORMATION
  Report Type: Spontaneous
  Country: US (occurrence: None)
  Receive Date: 20230324
  Receipt Date: 20230324
  Transmission Date: 20230417
  Serious: Yes (Other)
  Sender: FDA-Public Use
  Company Number: None

PATIENT
  Age: 9 Week
  Sex: Male
  Weight: 4.08 kg

DRUGS (1)
  1. SUMATRIPTAN [Suspect]
     Active Substance: SUMATRIPTAN
     Indication: Migraine
     Dosage: 50MG PRN PO?
     Route: 048

REACTIONS (3)
  - Postnatal growth restriction [None]
  - Maternal drugs affecting foetus [None]
  - Exposure during pregnancy [None]

NARRATIVE: CASE EVENT DATE: 20230111
